FAERS Safety Report 24143106 (Version 3)
Quarter: 2024Q3

REPORT INFORMATION
  Report Type: Spontaneous
  Country: ES (occurrence: ES)
  Receive Date: 20240726
  Receipt Date: 20240912
  Transmission Date: 20241016
  Serious: Yes (Hospitalization, Other)
  Sender: APELLIS PHARMACEUTICALS
  Company Number: ES-BIOVITRUM-2024-ES-001762

PATIENT

DRUGS (22)
  1. PEGCETACOPLAN [Suspect]
     Active Substance: PEGCETACOPLAN
     Indication: Paroxysmal nocturnal haemoglobinuria
     Dosage: TWICE A WEEK
     Dates: start: 20230904
  2. PEGCETACOPLAN [Suspect]
     Active Substance: PEGCETACOPLAN
     Dosage: 2 TIMES PER WEEK
  3. PEGCETACOPLAN [Suspect]
     Active Substance: PEGCETACOPLAN
     Dosage: THREE SUBCUTANEOUS INFUSIONS OF?PEGCETACOPLAN IN 3 DAYS
  4. PEGCETACOPLAN [Suspect]
     Active Substance: PEGCETACOPLAN
     Dosage: EVERY THREE DAYS
  5. PEGCETACOPLAN [Suspect]
     Active Substance: PEGCETACOPLAN
     Dosage: TWICE A WEEK
     Route: 058
  6. PEGCETACOPLAN [Suspect]
     Active Substance: PEGCETACOPLAN
     Dosage: EVERY 3 DAYS
     Route: 058
     Dates: start: 202407
  7. PEGCETACOPLAN [Suspect]
     Active Substance: PEGCETACOPLAN
     Dosage: EVERY THREE DAYS
     Route: 058
     Dates: start: 20240503, end: 20240505
  8. PEGCETACOPLAN [Suspect]
     Active Substance: PEGCETACOPLAN
     Dosage: TWO TIMES PER WEEK
     Route: 058
     Dates: start: 20240522, end: 202407
  9. PEGCETACOPLAN [Suspect]
     Active Substance: PEGCETACOPLAN
     Dosage: 3 WEEKLY ADMINISTRATIONS (MONDAY, FRIDAY, SUNDAY)
     Route: 058
     Dates: start: 202406
  10. PEGCETACOPLAN [Suspect]
     Active Substance: PEGCETACOPLAN
     Route: 058
     Dates: start: 201905
  11. PEGCETACOPLAN [Suspect]
     Active Substance: PEGCETACOPLAN
     Dosage: THREE SUBCUTANEOUS INFUSIONS OF PEGCETACOPLAN IN 3 DAYS
     Route: 058
     Dates: start: 202407
  12. PEGCETACOPLAN [Suspect]
     Active Substance: PEGCETACOPLAN
     Dosage: 3 DAYS BY WEEK
     Route: 058
     Dates: start: 20240724
  13. HUMALOG [Concomitant]
     Active Substance: INSULIN LISPRO
     Indication: Product used for unknown indication
     Dosage: 5 MG
  14. HUMALOG [Concomitant]
     Active Substance: INSULIN LISPRO
  15. OMEPRAZOLE [Concomitant]
     Active Substance: OMEPRAZOLE
     Indication: Product used for unknown indication
     Dosage: 20 MG
  16. PRADAXA [Concomitant]
     Active Substance: DABIGATRAN ETEXILATE MESYLATE
     Indication: Product used for unknown indication
     Dosage: 150 MG
  17. ATORVASTATIN CALCIUM [Concomitant]
     Active Substance: ATORVASTATIN CALCIUM
     Indication: Product used for unknown indication
     Dosage: 20 MG
  18. JARDIANCE [Concomitant]
     Active Substance: EMPAGLIFLOZIN
     Indication: Product used for unknown indication
     Dosage: 10 MG
  19. CYANOCOBALAMIN [Concomitant]
     Active Substance: CYANOCOBALAMIN
     Indication: Product used for unknown indication
     Dosage: 100 UG
  20. FOLIC ACID [Concomitant]
     Active Substance: FOLIC ACID
     Indication: Product used for unknown indication
     Dosage: 5 MG
  21. BISOPROLOL [Concomitant]
     Active Substance: BISOPROLOL\BISOPROLOL FUMARATE
     Indication: Product used for unknown indication
     Dosage: 2.5 MG
  22. OLMESARTAN MEDOXOMIL [Concomitant]
     Active Substance: OLMESARTAN MEDOXOMIL
     Indication: Product used for unknown indication
     Dosage: 20 MG

REACTIONS (9)
  - Haemoglobinuria [Not Recovered/Not Resolved]
  - Infection [Recovered/Resolved]
  - Haemolysis [Recovering/Resolving]
  - Off label use [Unknown]
  - COVID-19 [Recovered/Resolved with Sequelae]
  - Choluria [Recovered/Resolved with Sequelae]
  - Folliculitis [Unknown]
  - Acute kidney injury [Recovered/Resolved]
  - Pyrexia [Recovered/Resolved]

NARRATIVE: CASE EVENT DATE: 20230430
